FAERS Safety Report 19051081 (Version 1)
Quarter: 2021Q1

REPORT INFORMATION
  Report Type: Spontaneous
  Country: US (occurrence: US)
  Receive Date: 20210324
  Receipt Date: 20210324
  Transmission Date: 20210420
  Serious: No
  Sender: FDA-Public Use
  Company Number: US-ALLERGAN-2010742US

PATIENT
  Age: 69 Year
  Sex: Male
  Weight: 65.77 kg

DRUGS (2)
  1. FAMOTIDINE. [Concomitant]
     Active Substance: FAMOTIDINE
     Indication: BARRETT^S OESOPHAGUS
     Dosage: 40 MG, BID
     Route: 048
  2. MESALAZINE ? BP [Suspect]
     Active Substance: MESALAMINE
     Indication: RADIATION INFLAMMATION
     Dosage: 1000 MG, SINGLE
     Route: 054
     Dates: start: 20200304, end: 20200304

REACTIONS (1)
  - Haematuria [Unknown]

NARRATIVE: CASE EVENT DATE: 20200305
